FAERS Safety Report 9436537 (Version 1)
Quarter: 2013Q3

REPORT INFORMATION
  Report Type: Spontaneous
  Country: US (occurrence: US)
  Receive Date: 20130802
  Receipt Date: 20130802
  Transmission Date: 20140515
  Serious: No
  Sender: FDA-Public Use
  Company Number: US-OPTIMER-20130091

PATIENT
  Age: 25 Year
  Sex: Male

DRUGS (1)
  1. DIFICID [Suspect]
     Indication: CLOSTRIDIUM DIFFICILE COLITIS

REACTIONS (2)
  - Clostridium difficile colitis [Unknown]
  - Disease recurrence [Unknown]
